FAERS Safety Report 12583785 (Version 1)
Quarter: 2016Q3

REPORT INFORMATION
  Report Type: Spontaneous
  Country: CA (occurrence: CA)
  Receive Date: 20160722
  Receipt Date: 20160722
  Transmission Date: 20161109
  Serious: Yes (Hospitalization)
  Sender: FDA-Public Use
  Company Number: CA-SAOL THERAPEUTICS-2016SAO00205

PATIENT
  Sex: Male

DRUGS (1)
  1. BACLOFEN. [Suspect]
     Active Substance: BACLOFEN
     Dosage: 661 ?G, \DAY
     Route: 037

REACTIONS (2)
  - CSF protein increased [Unknown]
  - CSF glucose decreased [Unknown]

NARRATIVE: CASE EVENT DATE: 2016
